FAERS Safety Report 14139896 (Version 5)
Quarter: 2018Q2

REPORT INFORMATION
  Report Type: Spontaneous
  Country: JP (occurrence: JP)
  Receive Date: 20171030
  Receipt Date: 20180418
  Transmission Date: 20180711
  Serious: Yes (Hospitalization, Other)
  Sender: FDA-Public Use
  Company Number: JP-TEVA-812469ACC

PATIENT
  Age: 59 Year
  Sex: Female

DRUGS (12)
  1. BENDAMUSTINE HYDROCHLORIDE. [Suspect]
     Active Substance: BENDAMUSTINE HYDROCHLORIDE
     Dosage: 90MG/M2X1/DAY, CYCLIC (EVERY 4 WEEKS)
     Route: 041
     Dates: start: 20170213, end: 20170214
  2. BENDAMUSTINE HYDROCHLORIDE. [Suspect]
     Active Substance: BENDAMUSTINE HYDROCHLORIDE
     Dosage: 90MG/M2X1/DAY, CYCLIC (EVERY 4 WEEKS)
     Route: 041
     Dates: start: 20170410, end: 20170411
  3. RITUXIMAB. [Suspect]
     Active Substance: RITUXIMAB
     Dosage: (EVERY 4 WEEKS)
     Route: 041
     Dates: start: 20170510
  4. BENDAMUSTINE HYDROCHLORIDE. [Suspect]
     Active Substance: BENDAMUSTINE HYDROCHLORIDE
     Dosage: 90MG/M2X1/DAY, CYCLIC (EVERY 4 WEEKS)
     Route: 041
     Dates: start: 20170116, end: 20170117
  5. RITUXIMAB. [Suspect]
     Active Substance: RITUXIMAB
     Dosage: (EVERY 4 WEEKS)
     Route: 041
     Dates: start: 20170208
  6. BENDAMUSTINE HYDROCHLORIDE. [Suspect]
     Active Substance: BENDAMUSTINE HYDROCHLORIDE
     Indication: B-CELL LYMPHOMA
     Dosage: (EVERY 4 WEEKS)
     Route: 041
     Dates: start: 20161219, end: 20161220
  7. BENDAMUSTINE HYDROCHLORIDE. [Suspect]
     Active Substance: BENDAMUSTINE HYDROCHLORIDE
     Dosage: 90MG/M2X1/DAY, CYCLIC (EVERY 4 WEEKS)
     Route: 041
     Dates: start: 20170508, end: 20170509
  8. RITUXIMAB. [Suspect]
     Active Substance: RITUXIMAB
     Dosage: (EVERY 4 WEEKS)
     Route: 041
     Dates: start: 20170111
  9. RITUXIMAB. [Suspect]
     Active Substance: RITUXIMAB
     Dosage: (EVERY 4 WEEKS)
     Route: 041
     Dates: start: 20170308
  10. RITUXIMAB. [Suspect]
     Active Substance: RITUXIMAB
     Dosage: (EVERY 4 WEEKS)
     Route: 041
     Dates: start: 20170405
  11. BENDAMUSTINE HYDROCHLORIDE. [Suspect]
     Active Substance: BENDAMUSTINE HYDROCHLORIDE
     Dosage: 90MG/M2X1/DAY, CYCLIC (EVERY 4 WEEKS)
     Route: 041
     Dates: start: 20170313, end: 20170314
  12. RITUXIMAB. [Suspect]
     Active Substance: RITUXIMAB
     Indication: B-CELL LYMPHOMA
     Dosage: (EVERY 4 WEEKS)
     Route: 041
     Dates: start: 20161215

REACTIONS (3)
  - Cytomegalovirus chorioretinitis [Recovering/Resolving]
  - Prescribed underdose [Unknown]
  - Papilloedema [Unknown]

NARRATIVE: CASE EVENT DATE: 20161219
